FAERS Safety Report 9121894 (Version 2)
Quarter: 2015Q2

REPORT INFORMATION
  Report Type: Spontaneous
  Country: US (occurrence: US)
  Receive Date: 20130114
  Receipt Date: 20150518
  Transmission Date: 20150821
  Serious: No
  Sender: FDA-Public Use
  Company Number: US-PFIZER INC-2013011545

PATIENT
  Age: 77 Year
  Sex: Female
  Weight: 50.8 kg

DRUGS (2)
  1. CELEBREX [Suspect]
     Active Substance: CELECOXIB
     Indication: PAIN IN EXTREMITY
  2. CELEBREX [Suspect]
     Active Substance: CELECOXIB
     Indication: BACK PAIN
     Dosage: 200 MG, 1X/DAY
     Route: 048
     Dates: start: 20121101

REACTIONS (4)
  - Arthritis [Unknown]
  - Osteopenia [Unknown]
  - Back pain [Unknown]
  - Gait disturbance [Unknown]
